FAERS Safety Report 22066253 (Version 1)
Quarter: 2023Q1

REPORT INFORMATION
  Report Type: Spontaneous
  Country: US (occurrence: None)
  Receive Date: 20230306
  Receipt Date: 20230306
  Transmission Date: 20230418
  Serious: No
  Sender: FDA-Public Use
  Company Number: None

PATIENT
  Age: 79 Year
  Sex: 0

DRUGS (2)
  1. AMBRISENTAN [Suspect]
     Active Substance: AMBRISENTAN
     Indication: Pulmonary arterial hypertension
     Dosage: FREQUENCY : DAILY;?
     Route: 048
  2. TADALAFIL [Suspect]
     Active Substance: TADALAFIL

REACTIONS (6)
  - Dyspnoea [None]
  - Pulmonary fibrosis [None]
  - COVID-19 [None]
  - Localised infection [None]
  - Blood cholesterol increased [None]
  - Multiple allergies [None]

NARRATIVE: CASE EVENT DATE: 20230303
